FAERS Safety Report 26028199 (Version 1)
Quarter: 2025Q4

REPORT INFORMATION
  Report Type: Spontaneous
  Country: US (occurrence: US)
  Receive Date: 20251111
  Receipt Date: 20251111
  Transmission Date: 20260118
  Serious: No
  Sender: ORASIS PHARMACEUTICALS
  Company Number: US-ORASIS PHARMACEUTIALS-2025ORA00124

PATIENT
  Sex: Male

DRUGS (1)
  1. QLOSI [Suspect]
     Active Substance: PILOCARPINE HYDROCHLORIDE
     Dosage: 1 DROP INTO EACH EYE DAILY, 1X/DAY, MAY REPEAT 1 TIME AFTER 2-3 HOURS
     Route: 047

REACTIONS (5)
  - Ocular hyperaemia [Unknown]
  - Nausea [Unknown]
  - Visual impairment [Unknown]
  - Headache [Unknown]
  - Unevaluable event [Unknown]
